FAERS Safety Report 5221818-1 (Version None)
Quarter: 2007Q1

REPORT INFORMATION
  Report Type: 
  Country: None (occurrence: None)
  Receive Date: 20070126
  Receipt Date: 20070126
  Transmission Date: 20070707
  Serious: Yes (Death, Hospitalization)
  Sender: FDA-Public Use
  Company Number: None

PATIENT
  Age: 30 Year
  Sex: Male
  Weight: 91.7 kg

DRUGS (17)
  1. CYTOXAN [Suspect]
     Indication: ACUTE LYMPHOCYTIC LEUKAEMIA
     Dosage: 4400 MG/ QD IV
     Route: 042
     Dates: start: 20061202, end: 20061203
  2. CYTOXAN [Suspect]
     Indication: CHEMOTHERAPY
     Dosage: 4400 MG/ QD IV
     Route: 042
     Dates: start: 20061202, end: 20061203
  3. TBI [Suspect]
     Dosage: 1200 CGY
     Dates: start: 20061128, end: 20061201
  4. PHENYTOIN [Concomitant]
  5. RISPERDAL [Concomitant]
  6. THIAMINE [Concomitant]
  7. UROSODIOL [Concomitant]
  8. CALCIUM CARBONATE [Concomitant]
  9. MMF [Concomitant]
  10. METHYLPREDNISOLONE [Concomitant]
  11. VANCOMYCIN [Concomitant]
  12. LINEZOLID [Concomitant]
  13. PIPERACILLIN/TAXO [Concomitant]
  14. ACYCLOVIR [Concomitant]
  15. CASPOFUNGIN [Concomitant]
  16. FILGRASTIM [Concomitant]
  17. MORPHINE DRIP [Concomitant]

REACTIONS (1)
  - RESPIRATORY FAILURE [None]
